FAERS Safety Report 13470243 (Version 1)
Quarter: 2017Q2

REPORT INFORMATION
  Report Type: Spontaneous
  Country: US (occurrence: US)
  Receive Date: 20170421
  Receipt Date: 20170421
  Transmission Date: 20170830
  Serious: No
  Sender: FDA-Public Use
  Company Number: None

PATIENT
  Age: 25 Year
  Sex: Female

DRUGS (1)
  1. PULMOZYME [Suspect]
     Active Substance: DORNASE ALFA
     Indication: INFECTIVE PULMONARY EXACERBATION OF CYSTIC FIBROSIS
     Dosage: 1MG/1ML 1 VIAL DAILY INHALE
     Route: 055
     Dates: start: 20170210, end: 20170214

REACTIONS (1)
  - Lung transplant [None]

NARRATIVE: CASE EVENT DATE: 20170214
